FAERS Safety Report 15090709 (Version 1)
Quarter: 2018Q2

REPORT INFORMATION
  Report Type: Spontaneous
  Country: ES (occurrence: ES)
  Receive Date: 20180608
  Receipt Date: 20180608
  Transmission Date: 20180711
  Serious: Yes (Disabling)
  Sender: FDA-Public Use
  Company Number: None

PATIENT
  Age: 53 Year
  Sex: Female
  Weight: 58 kg

DRUGS (1)
  1. PRALUENT [Suspect]
     Active Substance: ALIROCUMAB
     Indication: HYPERCHOLESTEROLAEMIA
     Route: 030

REACTIONS (5)
  - Cognitive disorder [None]
  - Blood creatine phosphokinase increased [None]
  - Gastrointestinal disorder [None]
  - Low density lipoprotein increased [None]
  - Immune system disorder [None]

NARRATIVE: CASE EVENT DATE: 20170827
